FAERS Safety Report 8762390 (Version 1)
Quarter: 2012Q4

REPORT INFORMATION
  Report Type: 
  Country: US (occurrence: US)
  Receive Date: 20120829
  Receipt Date: 20120829
  Transmission Date: 20130627
  Serious: No
  Sender: FDA-Public Use
  Company Number: US-PFIZER INC-2012212278

PATIENT
  Sex: Male

DRUGS (4)
  1. EFFEXOR XR [Suspect]
     Indication: HOT FLUSH
     Dosage: 75 mg, 1x/day
     Route: 048
  2. EFFEXOR XR [Suspect]
     Dosage: 37.5 mg, 1x/day
     Route: 048
  3. EFFEXOR XR [Suspect]
     Dosage: UNK
     Route: 048
  4. LUPRON [Concomitant]
     Dosage: UNK

REACTIONS (3)
  - Off label use [Unknown]
  - Fatigue [Unknown]
  - Wrong technique in drug usage process [Unknown]
